FAERS Safety Report 8902947 (Version 1)
Quarter: 2012Q4

REPORT INFORMATION
  Report Type: 
  Country: MX (occurrence: MX)
  Receive Date: 20121113
  Receipt Date: 20121113
  Transmission Date: 20130627
  Serious: Yes (Hospitalization)
  Sender: FDA-Public Use
  Company Number: PHHY2012MX104090

PATIENT
  Age: 50 Year
  Sex: Female

DRUGS (3)
  1. ZOMETA [Suspect]
     Indication: METASTASES TO BONE
     Dosage: 4 mg, every 3-4 weeks
  2. ZOLEDRONIC ACID [Suspect]
     Dosage: UNK UKN, UNK
     Route: 042
  3. LETROZOLE [Suspect]
     Dosage: UNK UKN, UNK

REACTIONS (5)
  - Toxicity to various agents [Unknown]
  - Nausea [Unknown]
  - Vomiting [Unknown]
  - Asthenia [Unknown]
  - Bone pain [Unknown]
